FAERS Safety Report 4300229-7 (Version None)
Quarter: 2004Q1

REPORT INFORMATION
  Report Type: 
  Country: None (occurrence: None)
  Receive Date: 20040220
  Receipt Date: 20040209
  Transmission Date: 20041129
  Serious: Yes (Hospitalization)
  Sender: FDA-Public Use
  Company Number: JP-BRISTOL-MYERS SQUIBB COMPANY-12500559

PATIENT
  Age: 49 Year
  Sex: Female

DRUGS (6)
  1. KENACORT-A INJ [Suspect]
     Indication: MACULOPATHY
     Route: 031
     Dates: start: 20030827, end: 20030827
  2. FLUMARIN [Concomitant]
     Route: 042
     Dates: start: 20030827, end: 20030827
  3. FLOMOX [Concomitant]
     Route: 048
     Dates: start: 20030827, end: 20030831
  4. ETODOLAC [Concomitant]
     Route: 048
     Dates: start: 20030827, end: 20030831
  5. CRAVIT [Concomitant]
     Route: 031
     Dates: start: 20030827, end: 20030926
  6. BRONUCK [Concomitant]
     Route: 031
     Dates: start: 20030827, end: 20060926

REACTIONS (2)
  - ENDOPHTHALMITIS [None]
  - VITREOUS OPACITIES [None]
